FAERS Safety Report 4659392-0 (Version None)
Quarter: 2005Q2

REPORT INFORMATION
  Report Type: 
  Country: None (occurrence: None)
  Receive Date: 20050510
  Receipt Date: 20050427
  Transmission Date: 20051028
  Serious: Yes (Hospitalization)
  Sender: FDA-Public Use
  Company Number: 6014488

PATIENT
  Age: 79 Year
  Sex: Female

DRUGS (7)
  1. SOPROL (TABLET) (BISORPLOL) [Suspect]
     Indication: ESSENTIAL HYPERTENSION
     Route: 048
     Dates: start: 19950101
  2. LEVOTHYROXINE SODIUM [Suspect]
     Route: 048
  3. FOSAMAX [Suspect]
     Route: 048
  4. MEDIATOR (BENFLUOREX HYDROCHLORIDE) [Suspect]
     Route: 048
  5. SOTALOL HCL [Suspect]
     Route: 048
     Dates: end: 20041130
  6. ALLOPURINOL [Suspect]
     Route: 048
  7. RAMIPRIL [Suspect]

REACTIONS (4)
  - LUNG INFILTRATION [None]
  - OBLITERATIVE BRONCHIOLITIS [None]
  - RESTRICTIVE PULMONARY DISEASE [None]
  - SJOGREN'S SYNDROME [None]
